FAERS Safety Report 20916860 (Version 1)
Quarter: 2022Q2

REPORT INFORMATION
  Report Type: Spontaneous
  Country: CN (occurrence: CN)
  Receive Date: 20220605
  Receipt Date: 20220605
  Transmission Date: 20220720
  Serious: Yes (Hospitalization)
  Sender: FDA-Public Use
  Company Number: None

PATIENT
  Age: 46 Year
  Sex: Female
  Weight: 68 kg

DRUGS (4)
  1. CYCLOPHOSPHAMIDE [Suspect]
     Active Substance: CYCLOPHOSPHAMIDE
     Indication: Invasive ductal breast carcinoma
     Dosage: 1000 MG, QD, 0.9% SODIUM CHLORIDE INJECTION (100ML) + CYCLOPHOSPHAMIDE FOR INJECTION (1000 MG).
     Route: 042
     Dates: start: 20220503, end: 20220503
  2. SODIUM CHLORIDE [Suspect]
     Active Substance: SODIUM CHLORIDE
     Indication: Medication dilution
     Dosage: 100 ML, QD, 0.9% SODIUM CHLORIDE INJECTION (100ML) + CYCLOPHOSPHAMIDE FOR INJECTION (1000 MG)
     Route: 042
     Dates: start: 20220503, end: 20220503
  3. ANHYDROUS DEXTROSE [Suspect]
     Active Substance: ANHYDROUS DEXTROSE
     Indication: Medication dilution
     Dosage: 250 ML, QD, 5% GLUCOSE INJECTION (250ML) + PIRARUBICIN HYDROCHLORIDE FOR INJECTION (84 MG)
     Route: 042
     Dates: start: 20220503, end: 20220503
  4. PIRARUBICIN HYDROCHLORIDE [Suspect]
     Active Substance: PIRARUBICIN HYDROCHLORIDE
     Indication: Invasive ductal breast carcinoma
     Dosage: 84 MG, QD, ,5% GLUCOSE INJECTION (250ML) + PIRARUBICIN HYDROCHLORIDE FOR INJECTION (84 MG)
     Route: 042
     Dates: start: 20220503, end: 20220503

REACTIONS (2)
  - White blood cell count decreased [Recovered/Resolved]
  - Neutrophil count decreased [Recovered/Resolved]

NARRATIVE: CASE EVENT DATE: 20220514
